FAERS Safety Report 7520573-X (Version None)
Quarter: 2011Q2

REPORT INFORMATION
  Report Type: 
  Country: None (occurrence: None)
  Receive Date: 20110603
  Receipt Date: 20110525
  Transmission Date: 20111010
  Serious: Yes (Other)
  Sender: FDA-Public Use
  Company Number: US-BIOGENIDEC-2011BI000293

PATIENT
  Age: 73 Year
  Sex: Female
  Weight: 65 kg

DRUGS (3)
  1. TYSABRI [Suspect]
     Route: 042
     Dates: start: 20110201
  2. TYSABRI [Suspect]
     Indication: MULTIPLE SCLEROSIS
     Route: 042
     Dates: start: 20080730, end: 20101222
  3. NEXIUM [Concomitant]
     Indication: HIATUS HERNIA

REACTIONS (3)
  - CATARACT [None]
  - INCISION SITE PAIN [None]
  - BREAST CANCER STAGE II [None]
